FAERS Safety Report 9470584 (Version 12)
Quarter: 2013Q4

REPORT INFORMATION
  Report Type: Spontaneous
  Country: US (occurrence: US)
  Receive Date: 20130822
  Receipt Date: 20131029
  Transmission Date: 20140711
  Serious: Yes (Other)
  Sender: FDA-Public Use
  Company Number: US-JNJFOC-20130808603

PATIENT
  Sex: Male
  Weight: 95.26 kg

DRUGS (6)
  1. XARELTO [Suspect]
     Indication: THROMBOSIS PROPHYLAXIS
     Dosage: FOR 2 WEEKS
     Route: 048
  2. XARELTO [Suspect]
     Indication: KNEE ARTHROPLASTY
     Dosage: FOR 2 WEEKS
     Route: 048
  3. TYLENOL [Concomitant]
     Route: 065
  4. NAPROXEN [Concomitant]
     Route: 065
  5. LORTAB [Concomitant]
     Route: 065
  6. ACETAMINOPHEN [Concomitant]
     Route: 065

REACTIONS (1)
  - Drug-induced liver injury [Recovered/Resolved]
